FAERS Safety Report 5414665-9 (Version None)
Quarter: 2007Q3

REPORT INFORMATION
  Report Type: 
  Country: None (occurrence: None)
  Receive Date: 20070813
  Receipt Date: 20070808
  Transmission Date: 20080115
  Serious: Yes (Other)
  Sender: FDA-Public Use
  Company Number: OSCN-PR-0611S-0360

PATIENT
  Sex: Female

DRUGS (2)
  1. OMNISCAN [Suspect]
     Indication: LIVER TRANSPLANT
     Dosage: 0.23 MMOL/KG, SINGLE DOSE, IV
     Route: 042
  2. MULTIHANCE [Concomitant]

REACTIONS (1)
  - NEPHROGENIC SYSTEMIC FIBROSIS [None]
